FAERS Safety Report 9417781 (Version 1)
Quarter: 2013Q3

REPORT INFORMATION
  Report Type: Spontaneous
  Country: FR (occurrence: FR)
  Receive Date: 20130724
  Receipt Date: 20130724
  Transmission Date: 20140515
  Serious: Yes (Death, Congenital Anomaly)
  Sender: FDA-Public Use
  Company Number: FR-GLAXOSMITHKLINE-B0908281B

PATIENT
  Sex: Male
  Weight: .5 kg

DRUGS (5)
  1. VENTOLINE [Suspect]
     Indication: SEASONAL ALLERGY
     Route: 064
  2. MIZOLASTINE [Suspect]
     Indication: SEASONAL ALLERGY
     Route: 065
  3. NASONEX [Suspect]
     Indication: SEASONAL ALLERGY
     Route: 064
  4. CROMOLYN SODIUM [Suspect]
     Indication: SEASONAL ALLERGY
     Route: 064
  5. FOLIC ACID [Concomitant]
     Indication: PRODUCT USED FOR UNKNOWN INDICATION
     Route: 064

REACTIONS (2)
  - Limb reduction defect [Fatal]
  - Foetal exposure during pregnancy [Unknown]
